FAERS Safety Report 4673597-4 (Version None)
Quarter: 2005Q2

REPORT INFORMATION
  Report Type: 
  Country: None (occurrence: None)
  Receive Date: 20050525
  Receipt Date: 20050517
  Transmission Date: 20051028
  Serious: Yes (Other)
  Sender: FDA-Public Use
  Company Number: PHFR2005GB01847

PATIENT

DRUGS (1)
  1. DIOVAN [Suspect]

REACTIONS (2)
  - HEPATIC FIBROSIS [None]
  - HEPATIC STEATOSIS [None]
